FAERS Safety Report 8374272-5 (Version None)
Quarter: 2012Q2

REPORT INFORMATION
  Report Type: 
  Country: None (occurrence: None)
  Receive Date: 20120518
  Receipt Date: 20120518
  Transmission Date: 20120825
  Serious: Yes (Other)
  Sender: FDA-Public Use
  Company Number: None

PATIENT
  Sex: Male
  Weight: 83.9154 kg

DRUGS (1)
  1. VENLAFAXINE [Suspect]
     Indication: MIGRAINE PROPHYLAXIS
     Dosage: 1 CAPSULE ONCE DAILY PO
     Route: 048
     Dates: start: 20120424, end: 20120515

REACTIONS (1)
  - SUICIDAL IDEATION [None]
